FAERS Safety Report 4682862-6 (Version None)
Quarter: 2005Q2

REPORT INFORMATION
  Report Type: 
  Country: None (occurrence: None)
  Receive Date: 20050606
  Receipt Date: 20050527
  Transmission Date: 20051028
  Serious: Yes (Other)
  Sender: FDA-Public Use
  Company Number: GB-BRISTOL-MYERS SQUIBB COMPANY-12985677

PATIENT
  Age: 75 Year

DRUGS (4)
  1. PACLITAXEL [Suspect]
     Indication: BREAST CANCER
     Route: 042
     Dates: start: 20050525, end: 20050525
  2. KYTRIL [Concomitant]
     Dates: start: 20050525, end: 20050525
  3. PIRITON [Concomitant]
     Dates: start: 20050525, end: 20050525
  4. ZANTAC [Concomitant]
     Dates: start: 20050525, end: 20050525

REACTIONS (2)
  - DIZZINESS [None]
  - SPEECH DISORDER [None]
